FAERS Safety Report 20407118 (Version 1)
Quarter: 2022Q1

REPORT INFORMATION
  Report Type: Spontaneous
  Country: DE (occurrence: DE)
  Receive Date: 20220131
  Receipt Date: 20220131
  Transmission Date: 20220423
  Serious: Yes (Other)
  Sender: FDA-Public Use
  Company Number: DE-ACIS-20220112

PATIENT
  Age: 45 Year
  Sex: Female

DRUGS (4)
  1. PREDNISOLONE [Suspect]
     Active Substance: PREDNISOLONE
     Indication: Adrenal insufficiency
     Route: 065
  2. HYDROCORTISONE [Suspect]
     Active Substance: HYDROCORTISONE
     Indication: Adrenal insufficiency
     Dosage: DOSE: 10-0-5 MG
     Route: 048
     Dates: start: 202001
  3. EUTHYROX [Concomitant]
     Active Substance: LEVOTHYROXINE SODIUM
     Indication: Product used for unknown indication
  4. CYCLOSPORINE [Concomitant]
     Active Substance: CYCLOSPORINE
     Indication: Product used for unknown indication
     Dosage: STRENGTH: 25 MG AND 50 MG

REACTIONS (3)
  - Urosepsis [Unknown]
  - Abdominal distension [Not Recovered/Not Resolved]
  - Amenorrhoea [Not Recovered/Not Resolved]
